FAERS Safety Report 9886097 (Version 4)
Quarter: 2014Q2

REPORT INFORMATION
  Report Type: Spontaneous
  Country: GB (occurrence: GB)
  Receive Date: 20140210
  Receipt Date: 20140421
  Transmission Date: 20141212
  Serious: Yes (Other)
  Sender: FDA-Public Use
  Company Number: GB-JNJFOC-20140116600

PATIENT
  Age: 74 Year
  Sex: Male
  Weight: 79 kg

DRUGS (6)
  1. XARELTO [Suspect]
     Indication: CEREBROVASCULAR ACCIDENT PROPHYLAXIS
     Route: 048
     Dates: start: 20130827, end: 20131217
  2. SYMBICORT [Concomitant]
     Route: 065
  3. ENALAPRIL [Concomitant]
     Route: 065
  4. SALBUTAMOL [Concomitant]
     Route: 065
  5. TAMSULOSIN [Concomitant]
     Route: 048
  6. VENTOLIN [Concomitant]
     Route: 065

REACTIONS (15)
  - Retinal haemorrhage [Unknown]
  - Urinary retention [Not Recovered/Not Resolved]
  - Tinnitus [Recovered/Resolved]
  - Back pain [Unknown]
  - Arthralgia [Not Recovered/Not Resolved]
  - Arthralgia [Not Recovered/Not Resolved]
  - Pain in extremity [Unknown]
  - Blood pressure increased [Unknown]
  - Headache [Recovered/Resolved]
  - Groin pain [Not Recovered/Not Resolved]
  - Chest pain [Not Recovered/Not Resolved]
  - Abdominal pain upper [Not Recovered/Not Resolved]
  - Pruritus [Not Recovered/Not Resolved]
  - Pain of skin [Not Recovered/Not Resolved]
  - Inappropriate schedule of drug administration [Unknown]
